FAERS Safety Report 6307846-3 (Version None)
Quarter: 2009Q3

REPORT INFORMATION
  Report Type: 
  Country: None (occurrence: None)
  Receive Date: 20090812
  Receipt Date: 20090812
  Transmission Date: 20100115
  Serious: No
  Sender: FDA-Public Use
  Company Number: None

PATIENT
  Age: 25 Year
  Sex: Male
  Weight: 90.7194 kg

DRUGS (1)
  1. RISPERIDONE [Suspect]
     Dosage: 6 MG DAILY PO
     Route: 048

REACTIONS (1)
  - WEIGHT INCREASED [None]
